FAERS Safety Report 9150359 (Version 1)
Quarter: 2013Q1

REPORT INFORMATION
  Report Type: Report from Study
  Country: US (occurrence: US)
  Receive Date: 20130308
  Receipt Date: 20130308
  Transmission Date: 20140127
  Serious: Yes (Death)
  Sender: FDA-Public Use
  Company Number: US-ROCHE-1196751

PATIENT
  Age: 51 Year
  Sex: Male

DRUGS (11)
  1. TRASTUZUMAB [Suspect]
     Indication: METASTATIC GASTRIC CANCER
     Route: 065
     Dates: start: 20130128, end: 20130213
  2. TRASTUZUMAB [Suspect]
     Indication: METASTATIC GASTRIC CANCER
  3. SITAGLIPTIN [Concomitant]
     Route: 065
     Dates: start: 20130124
  4. ESOMEPRAZOLE [Concomitant]
     Route: 065
     Dates: start: 20130124
  5. GLYBURIDE [Concomitant]
     Route: 065
     Dates: start: 20130124
  6. HYDROMORPHONE [Concomitant]
     Route: 065
     Dates: start: 20130211
  7. METOCLOPRAMIDE [Concomitant]
     Route: 065
     Dates: start: 20130211
  8. ONDANSETRON [Concomitant]
     Route: 065
     Dates: start: 20130211
  9. RAMIPRIL [Concomitant]
     Route: 065
     Dates: start: 20130124
  10. TAMSULON [Concomitant]
     Route: 065
     Dates: start: 20130211
  11. METFORMIN HYDROCHLORIDE [Concomitant]
     Route: 065
     Dates: start: 20130124

REACTIONS (1)
  - Death [Fatal]
